FAERS Safety Report 9230300 (Version 1)
Quarter: 2013Q2

REPORT INFORMATION
  Report Type: Spontaneous
  Country: US (occurrence: None)
  Receive Date: 20130411
  Receipt Date: 20130411
  Transmission Date: 20140414
  Serious: Yes (Death, Other)
  Sender: FDA-Public Use
  Company Number: SYM-2013-02500

PATIENT
  Age: 49 Year
  Sex: Female

DRUGS (5)
  1. DILTIAZEM HYDROCHLORIDE [Suspect]
     Indication: PRODUCT USED FOR UNKNOWN INDICATION
     Route: 048
  2. IBUPROFEN [Suspect]
     Indication: PRODUCT USED FOR UNKNOWN INDICATION
     Route: 048
  3. SERTRALINE HYDROCHLORIDE [Suspect]
     Route: 048
  4. MOTRIN [Suspect]
     Indication: PRODUCT USED FOR UNKNOWN INDICATION
  5. THEOPHYLLINE [Suspect]
     Indication: PRODUCT USED FOR UNKNOWN INDICATION
     Route: 048

REACTIONS (7)
  - Hypotension [None]
  - Tachycardia [None]
  - Haemodialysis [None]
  - Supraventricular extrasystoles [None]
  - Hypokalaemia [None]
  - Hypertonia [None]
  - Vasodilation procedure [None]
